FAERS Safety Report 9349862 (Version 2)
Quarter: 2013Q2

REPORT INFORMATION
  Report Type: Spontaneous
  Country: US (occurrence: US)
  Receive Date: 20130614
  Receipt Date: 20130627
  Transmission Date: 20140414
  Serious: Yes (Other)
  Sender: FDA-Public Use
  Company Number: US-TEVA-411306USA

PATIENT
  Age: 58 Year
  Sex: Female
  Weight: 90.35 kg

DRUGS (21)
  1. ACTIQ [Suspect]
     Indication: PROCEDURAL PAIN
     Dates: start: 20130525
  2. ACTIQ [Suspect]
     Dates: start: 20030601
  3. MEPERIDINE HYDROCHLORIDE [Suspect]
     Indication: PAIN
     Dosage: 5 TABLETS DAILY/AS NEEDED
     Route: 048
     Dates: start: 20130525
  4. METHADONE [Concomitant]
     Indication: PAIN
     Dosage: FOUR TIMES A DAY
     Route: 048
  5. LASIX [Concomitant]
     Indication: CARDIAC DISORDER
     Dosage: EVERY DAY
     Route: 048
  6. ENALAPRIL [Concomitant]
     Indication: CARDIAC DISORDER
     Dosage: EVERY DAY
     Route: 048
  7. AMBIEN [Concomitant]
     Indication: INSOMNIA
     Dosage: EVERY NIGHT AT BEDTIME
     Route: 048
  8. PLAVIX [Concomitant]
     Indication: ANTICOAGULANT THERAPY
     Dosage: EVERY DAY
     Route: 048
  9. ASPIRIN [Concomitant]
     Indication: PROPHYLAXIS
     Dosage: EVERY DAY
     Route: 048
  10. VENTOLIN [Concomitant]
     Indication: BRONCHITIS CHRONIC
     Dosage: 2 PUFFS FOUR TIMES A DAY/AS NEEDED
     Route: 055
  11. FLEXERIL [Concomitant]
     Indication: MUSCLE SPASMS
     Dosage: THREE TIMES A DAY/AS NEEDED
     Route: 048
  12. VITAMIN D [Concomitant]
     Indication: VITAMIN SUPPLEMENTATION
     Dosage: 50,000 UNITS TWICE WEEKLY
     Route: 048
  13. SPIRIVA [Concomitant]
     Indication: BRONCHITIS CHRONIC
     Dosage: EVERY DAY
     Route: 055
  14. PHENERGAN [Concomitant]
     Indication: NAUSEA
     Dosage: THREE TIMES A DAY
     Route: 048
     Dates: start: 20030601
  15. NITROGYLCERIN PATCH [Concomitant]
     Indication: CARDIAC DISORDER
     Dosage: DAILY
     Route: 062
  16. XOPENEX [Concomitant]
     Indication: BRONCHITIS CHRONIC
     Dosage: THREE TIMES A DAY
     Route: 055
  17. COMBIVENT [Concomitant]
     Indication: BRONCHITIS CHRONIC
     Dosage: TWO PUFFS FOUR TIMES A DAY/AS NEEDED
     Route: 055
  18. LEVEMIR [Concomitant]
     Indication: DIABETES MELLITUS
     Dosage: 73 UNITS TWICE A DAY
     Route: 058
  19. NOVOLOG [Concomitant]
     Indication: DIABETES MELLITUS
     Dosage: 50 UNITS THREE TIMES A DAY/SLIDING SCALE
     Route: 058
  20. ALBUTEROL [Concomitant]
     Indication: BRONCHITIS CHRONIC
     Dosage: 2 INH/FOUR TIMES A DAY
     Route: 055
  21. FLOVENT [Concomitant]
     Indication: BRONCHITIS CHRONIC
     Dosage: TWO PUFFS TWICE DAILY/AS NEEDED
     Route: 055

REACTIONS (7)
  - Conjunctivitis infective [Recovered/Resolved]
  - Dyspnoea [Not Recovered/Not Resolved]
  - Drug hypersensitivity [Unknown]
  - Pain [Not Recovered/Not Resolved]
  - Nausea [Not Recovered/Not Resolved]
  - Pruritus [Not Recovered/Not Resolved]
  - Off label use [Unknown]
